FAERS Safety Report 17669833 (Version 1)
Quarter: 2020Q2

REPORT INFORMATION
  Report Type: Spontaneous
  Country: US (occurrence: US)
  Receive Date: 20200414
  Receipt Date: 20200414
  Transmission Date: 20200713
  Serious: No
  Sender: FDA-Public Use
  Company Number: None

PATIENT
  Age: 78 Year
  Sex: Male
  Weight: 94.5 kg

DRUGS (8)
  1. CALCIUM [Concomitant]
     Active Substance: CALCIUM
  2. CIALIS [Concomitant]
     Active Substance: TADALAFIL
  3. OXYCODONE AND ACETAMINOPHEN [Suspect]
     Active Substance: ACETAMINOPHEN\OXYCODONE HYDROCHLORIDE
     Indication: OSTEOARTHRITIS
     Dosage: ?          QUANTITY:1 TABLET(S);?
     Route: 048
  4. VITAMIN D [Concomitant]
     Active Substance: VITAMIN D NOS
  5. VITAMIN B12 [Concomitant]
     Active Substance: CYANOCOBALAMIN
  6. TAMSULOSIN [Concomitant]
     Active Substance: TAMSULOSIN
  7. OXYCODONE AND ACETAMINOPHEN [Suspect]
     Active Substance: ACETAMINOPHEN\OXYCODONE HYDROCHLORIDE
     Indication: BACK PAIN
     Dosage: ?          QUANTITY:1 TABLET(S);?
     Route: 048
  8. CURCUMIN [Concomitant]
     Active Substance: CURCUMIN

REACTIONS (4)
  - Product formulation issue [None]
  - Product measured potency issue [None]
  - Therapeutic product effect decreased [None]
  - Drug withdrawal syndrome [None]

NARRATIVE: CASE EVENT DATE: 20200210
